FAERS Safety Report 6211083-0 (Version None)
Quarter: 2009Q2

REPORT INFORMATION
  Report Type: 
  Country: None (occurrence: None)
  Receive Date: 20090602
  Receipt Date: 20090526
  Transmission Date: 20091009
  Serious: Yes (Hospitalization)
  Sender: FDA-Public Use
  Company Number: FR-EISAI INC.-E2020-04239-SPO-FR

PATIENT
  Sex: Male
  Weight: 54 kg

DRUGS (6)
  1. ARICEPT [Suspect]
     Route: 048
     Dates: start: 20010703, end: 20020116
  2. ARICEPT [Suspect]
     Route: 048
     Dates: start: 20020117, end: 20020518
  3. TRIATEC [Concomitant]
     Route: 048
  4. RISPERDAL [Concomitant]
     Route: 048
     Dates: start: 20010703
  5. XATRAL [Concomitant]
     Route: 048
  6. IMOVANE [Concomitant]
     Route: 048

REACTIONS (1)
  - CHRONIC OBSTRUCTIVE PULMONARY DISEASE [None]
